FAERS Safety Report 16159284 (Version 1)
Quarter: 2019Q2

REPORT INFORMATION
  Report Type: Spontaneous
  Country: US (occurrence: US)
  Receive Date: 20190404
  Receipt Date: 20190404
  Transmission Date: 20190711
  Serious: No
  Sender: FDA-Public Use
  Company Number: US-TEVA-2019-US-1024515

PATIENT
  Sex: Female

DRUGS (2)
  1. LORAZEPAM 1MG ACTAVIS [Suspect]
     Active Substance: LORAZEPAM
     Dates: start: 201808
  2. LORAZEPAM 1MG ACTAVIS [Suspect]
     Active Substance: LORAZEPAM
     Indication: ANXIETY
     Dates: start: 20190204

REACTIONS (4)
  - Depressed mood [Unknown]
  - Drug ineffective [Unknown]
  - Anxiety [Unknown]
  - Nasal congestion [Unknown]
